FAERS Safety Report 6678677-X (Version None)
Quarter: 2010Q2

REPORT INFORMATION
  Report Type: 
  Country: None (occurrence: None)
  Receive Date: 20100413
  Receipt Date: 20100406
  Transmission Date: 20101027
  Serious: Yes (Hospitalization)
  Sender: FDA-Public Use
  Company Number: DK-PFIZER INC-2010043099

PATIENT
  Age: 72 Year
  Sex: Female

DRUGS (2)
  1. CELEBRA [Suspect]
     Dosage: 200 MG, 1X/DAY
     Route: 048
  2. CITALOPRAM [Suspect]
     Indication: DEPRESSION
     Dosage: 20 MG, UNK
     Route: 048
     Dates: end: 20100312

REACTIONS (4)
  - CHROMATURIA [None]
  - DIZZINESS [None]
  - FAECES DISCOLOURED [None]
  - FATIGUE [None]
